FAERS Safety Report 14143403 (Version 1)
Quarter: 2017Q4

REPORT INFORMATION
  Report Type: Spontaneous
  Country: US (occurrence: US)
  Receive Date: 20171030
  Receipt Date: 20171030
  Transmission Date: 20180321
  Serious: No
  Sender: FDA-Public Use
  Company Number: US-009507513-1710USA001734

PATIENT
  Sex: Female
  Weight: 80.73 kg

DRUGS (1)
  1. NEXPLANON [Suspect]
     Active Substance: ETONOGESTREL
     Dosage: ONE ROD ONCE PER THREE YEARS
     Route: 059
     Dates: start: 20150819, end: 20170927

REACTIONS (2)
  - Device breakage [Recovered/Resolved]
  - No adverse event [Unknown]
